FAERS Safety Report 14403672 (Version 1)
Quarter: 2018Q1

REPORT INFORMATION
  Report Type: Spontaneous
  Country: US (occurrence: US)
  Receive Date: 20180117
  Receipt Date: 20180117
  Transmission Date: 20180509
  Serious: No
  Sender: FDA-Public Use
  Company Number: US-009507513-1712USA010163

PATIENT
  Sex: Female

DRUGS (1)
  1. ASMANEX HFA [Suspect]
     Active Substance: MOMETASONE FUROATE
     Dosage: ROUTE: INHALATION
     Dates: start: 20171217

REACTIONS (2)
  - Drug effect faster than expected [Unknown]
  - Therapeutic response unexpected [Unknown]

NARRATIVE: CASE EVENT DATE: 20171217
